FAERS Safety Report 13335619 (Version 1)
Quarter: 2017Q1

REPORT INFORMATION
  Report Type: Report from Study
  Country: None (occurrence: BR)
  Receive Date: 20170314
  Receipt Date: 20170314
  Transmission Date: 20170428
  Serious: Yes (Other)
  Sender: FDA-Public Use
  Company Number: BR-ABBVIE-17P-020-1905564-00

PATIENT
  Sex: Male
  Weight: 60 kg

DRUGS (2)
  1. SYNTHROID [Suspect]
     Active Substance: LEVOTHYROXINE SODIUM
     Indication: HYPOTHYROIDISM
     Dosage: DAILY DOSE: 62.5 MCG MORNING/FASTING
     Route: 048
  2. FORASEQ [Concomitant]
     Active Substance: BUDESONIDE\FORMOTEROL FUMARATE
     Indication: ASTHMA
     Dosage: EVERY DAY

REACTIONS (6)
  - Surgery [Unknown]
  - Drug hypersensitivity [Unknown]
  - Adenoidectomy [Unknown]
  - Inguinal hernia [Unknown]
  - Sinusitis [Unknown]
  - Asthma [Not Recovered/Not Resolved]

NARRATIVE: CASE EVENT DATE: 2002
